FAERS Safety Report 8340825-3 (Version None)
Quarter: 2012Q1

REPORT INFORMATION
  Report Type: 
  Country: None (occurrence: None)
  Receive Date: 20120329
  Receipt Date: 20090731
  Transmission Date: 20120608
  Serious: Yes (Other)
  Sender: FDA-Public Use
  Company Number: PHEH2009US08580

PATIENT
  Age: 81 Year
  Sex: Male

DRUGS (10)
  1. FENTANYL [Concomitant]
  2. VICODIN [Concomitant]
  3. ZOCOR [Concomitant]
  4. HYDROXYZINE HYDROCHLORIDE (HYDOXYZINE HYDROCHLORIDE) [Concomitant]
  5. EXELON [Suspect]
     Dosage: 9.5 MG, TRANSDERMAL
     Route: 062
     Dates: end: 20090701
  6. GABAPENTIN [Concomitant]
  7. RANITIDINE HYDROCHLORIDE [Concomitant]
  8. ASPIRIN [Concomitant]
  9. DILTIAZEM HYDROCHLORIDE [Concomitant]
  10. ZOLOFT [Concomitant]

REACTIONS (4)
  - CONFUSIONAL STATE [None]
  - COORDINATION ABNORMAL [None]
  - HALLUCINATION [None]
  - AMNESIA [None]
